FAERS Safety Report 6149105-8 (Version None)
Quarter: 2009Q2

REPORT INFORMATION
  Report Type: 
  Country: None (occurrence: None)
  Receive Date: 20090407
  Receipt Date: 20090327
  Transmission Date: 20091009
  Serious: Yes (Hospitalization)
  Sender: FDA-Public Use
  Company Number: WAES 0808USA00887

PATIENT
  Age: 63 Year
  Sex: Male

DRUGS (35)
  1. CAP VORINOSTAT [Suspect]
     Indication: NON-SMALL CELL LUNG CANCER
     Dosage: 400 MG/DAILY , PO
     Route: 048
     Dates: start: 20080404, end: 20080417
  2. CAP VORINOSTAT [Suspect]
     Indication: NON-SMALL CELL LUNG CANCER
     Dosage: 400 MG/DAILY , PO
     Route: 048
     Dates: start: 20080429, end: 20080512
  3. CAP VORINOSTAT [Suspect]
     Indication: NON-SMALL CELL LUNG CANCER
     Dosage: 400 MG/DAILY , PO
     Route: 048
     Dates: start: 20080520, end: 20080602
  4. CAP VORINOSTAT [Suspect]
     Indication: NON-SMALL CELL LUNG CANCER
     Dosage: 400 MG/DAILY , PO
     Route: 048
     Dates: start: 20080610, end: 20080623
  5. CAP VORINOSTAT [Suspect]
     Indication: NON-SMALL CELL LUNG CANCER
     Dosage: 400 MG/DAILY , PO
     Route: 048
     Dates: start: 20080701, end: 20080714
  6. CAP VORINOSTAT [Suspect]
     Indication: NON-SMALL CELL LUNG CANCER
     Dosage: 400 MG/DAILY , PO
     Route: 048
     Dates: start: 20080722, end: 20080731
  7. CARBOPLATIN [Suspect]
     Indication: NON-SMALL CELL LUNG CANCER
     Dosage: 766.61  MG/1X, IV
     Route: 042
     Dates: start: 20080408, end: 20080408
  8. CARBOPLATIN [Suspect]
     Indication: NON-SMALL CELL LUNG CANCER
     Dosage: 766.61  MG/1X, IV
     Route: 042
     Dates: start: 20080429, end: 20080429
  9. CARBOPLATIN [Suspect]
     Indication: NON-SMALL CELL LUNG CANCER
     Dosage: 766.61  MG/1X, IV
     Route: 042
     Dates: start: 20080520, end: 20080520
  10. CARBOPLATIN [Suspect]
     Indication: NON-SMALL CELL LUNG CANCER
     Dosage: 766.61  MG/1X, IV
     Route: 042
     Dates: start: 20080610, end: 20080610
  11. CARBOPLATIN [Suspect]
     Indication: NON-SMALL CELL LUNG CANCER
     Dosage: 766.61  MG/1X, IV
     Route: 042
     Dates: start: 20080701, end: 20080701
  12. CARBOPLATIN [Suspect]
     Indication: NON-SMALL CELL LUNG CANCER
     Dosage: 766.61  MG/1X, IV
     Route: 042
     Dates: start: 20080722, end: 20080722
  13. PACLITAXEL [Suspect]
     Indication: NON-SMALL CELL LUNG CANCER
     Dosage: 330 MG/1X, IV
     Route: 042
     Dates: start: 20080408, end: 20080408
  14. PACLITAXEL [Suspect]
     Indication: NON-SMALL CELL LUNG CANCER
     Dosage: 330 MG/1X, IV
     Route: 042
     Dates: start: 20080429, end: 20080429
  15. PACLITAXEL [Suspect]
     Indication: NON-SMALL CELL LUNG CANCER
     Dosage: 330 MG/1X, IV
     Route: 042
     Dates: start: 20080520, end: 20080520
  16. PACLITAXEL [Suspect]
     Indication: NON-SMALL CELL LUNG CANCER
     Dosage: 330 MG/1X, IV
     Route: 042
     Dates: start: 20080610, end: 20080610
  17. PACLITAXEL [Suspect]
     Indication: NON-SMALL CELL LUNG CANCER
     Dosage: 330 MG/1X, IV
     Route: 042
     Dates: start: 20080701, end: 20080701
  18. PACLITAXEL [Suspect]
     Indication: NON-SMALL CELL LUNG CANCER
     Dosage: 330 MG/1X, IV
     Route: 042
     Dates: start: 20080722, end: 20080722
  19. ATROVENT [Concomitant]
  20. CYMBALTA [Concomitant]
  21. ELECOR [Concomitant]
  22. FLUMIL GRANULADOS [Concomitant]
  23. FORTECORTIN [Concomitant]
  24. KYTRIL [Concomitant]
  25. PLAVIX [Concomitant]
  26. POLARAMINE [Concomitant]
  27. TORECAN [Concomitant]
  28. CARVEDILOL [Concomitant]
  29. DEXAMETHASONE TAB [Concomitant]
  30. ENALAPRIL MALEATE [Concomitant]
  31. LORAZEPAM [Concomitant]
  32. OMEPRAZOLE [Concomitant]
  33. RANITIDINE [Concomitant]
  34. SIMVASTATIN [Concomitant]
  35. TORSEMIDE [Concomitant]

REACTIONS (3)
  - BLOOD POTASSIUM DECREASED [None]
  - DIARRHOEA [None]
  - FEBRILE NEUTROPENIA [None]
